FAERS Safety Report 5396044-6 (Version None)
Quarter: 2007Q3

REPORT INFORMATION
  Report Type: 
  Country: None (occurrence: None)
  Receive Date: 20070724
  Receipt Date: 20070712
  Transmission Date: 20080115
  Serious: Yes (Other)
  Sender: FDA-Public Use
  Company Number: US-PFIZER INC-2007059129

PATIENT
  Sex: Female
  Weight: 59.9 kg

DRUGS (2)
  1. CHANTIX [Suspect]
     Indication: SMOKING CESSATION THERAPY
     Dates: start: 20070601, end: 20070701
  2. VITAMIN CAP [Concomitant]

REACTIONS (13)
  - ABDOMINAL DISTENSION [None]
  - AGITATION [None]
  - DEPRESSION [None]
  - DIZZINESS [None]
  - EMOTIONAL DISORDER [None]
  - EYE HAEMORRHAGE [None]
  - FATIGUE [None]
  - FEELING ABNORMAL [None]
  - LETHARGY [None]
  - NAUSEA [None]
  - STRESS [None]
  - SUICIDAL IDEATION [None]
  - WEIGHT INCREASED [None]
